FAERS Safety Report 9909414 (Version 2)
Quarter: 2014Q1

REPORT INFORMATION
  Report Type: Report from Study
  Country: US (occurrence: US)
  Receive Date: 20140219
  Receipt Date: 20140305
  Transmission Date: 20141002
  Serious: Yes (Other)
  Sender: FDA-Public Use
  Company Number: US-JNJFOC-20140206968

PATIENT
  Age: 60 Year
  Sex: Male
  Weight: 72.58 kg

DRUGS (4)
  1. INVOKANA [Suspect]
     Indication: PRODUCT USED FOR UNKNOWN INDICATION
     Route: 048
     Dates: start: 20140127
  2. METFORMIN [Concomitant]
     Indication: DIABETES MELLITUS
     Dates: start: 201201
  3. ATORVASTATIN [Concomitant]
     Indication: MITRAL VALVE PROLAPSE
     Dates: start: 2003
  4. RAMIPRIL [Concomitant]
     Indication: MITRAL VALVE PROLAPSE
     Dates: start: 2004

REACTIONS (2)
  - Weight decreased [Not Recovered/Not Resolved]
  - Somnolence [Not Recovered/Not Resolved]
